FAERS Safety Report 14081317 (Version 2)
Quarter: 2017Q4

REPORT INFORMATION
  Report Type: Spontaneous
  Country: US (occurrence: US)
  Receive Date: 20171012
  Receipt Date: 20171013
  Transmission Date: 20180321
  Serious: Yes (Hospitalization, Other)
  Sender: FDA-Public Use
  Company Number: US-TEVA-815135USA

PATIENT
  Sex: Female
  Weight: 111.68 kg

DRUGS (11)
  1. PROAIR HFA [Suspect]
     Active Substance: ALBUTEROL SULFATE
     Indication: ASTHMA
     Dates: start: 2005
  2. ASPIRIN. [Concomitant]
     Active Substance: ASPIRIN
  3. NOVOLOG [Concomitant]
     Active Substance: INSULIN ASPART
     Indication: DIABETES MELLITUS
  4. CALCIUM [Concomitant]
     Active Substance: CALCIUM
  5. FLOVENT HFA [Suspect]
     Active Substance: FLUTICASONE PROPIONATE
     Indication: ASTHMA
     Route: 065
  6. LEVEMIR [Concomitant]
     Active Substance: INSULIN DETEMIR
     Indication: DIABETES MELLITUS
  7. ZETIA [Concomitant]
     Active Substance: EZETIMIBE
     Indication: BLOOD CHOLESTEROL INCREASED
  8. LOSARTAN. [Concomitant]
     Active Substance: LOSARTAN
     Indication: HYPERTENSION
  9. FLUTICASONE. [Concomitant]
     Active Substance: FLUTICASONE
  10. POTASSIUM [Concomitant]
     Active Substance: POTASSIUM
  11. REFRESH EYE DROPS [Concomitant]

REACTIONS (11)
  - Swelling face [Unknown]
  - Bronchospasm [Recovered/Resolved]
  - Sinusitis [Unknown]
  - Asthma [Unknown]
  - Drug ineffective [Unknown]
  - Dyspnoea [Recovered/Resolved]
  - Joint swelling [Unknown]
  - Swollen tongue [Unknown]
  - Expired product administered [Unknown]
  - Peripheral swelling [Unknown]
  - Malaise [Recovered/Resolved]
